FAERS Safety Report 22539358 (Version 2)
Quarter: 2023Q2

REPORT INFORMATION
  Report Type: Report from Study
  Country: CA (occurrence: CA)
  Receive Date: 20230609
  Receipt Date: 20230629
  Transmission Date: 20230722
  Serious: Yes (Other)
  Sender: FDA-Public Use
  Company Number: CA-BIOGEN-2023BI01209558

PATIENT
  Sex: Female

DRUGS (2)
  1. TYSABRI [Suspect]
     Active Substance: NATALIZUMAB
     Indication: Multiple sclerosis
     Dosage: Q6-8 WEEKS
     Route: 050
     Dates: start: 20140710
  2. TYSABRI [Suspect]
     Active Substance: NATALIZUMAB
     Dosage: Q6-8 WEEKS
     Route: 050
     Dates: start: 20140710

REACTIONS (1)
  - Myelofibrosis [Not Recovered/Not Resolved]
